FAERS Safety Report 24686445 (Version 1)
Quarter: 2024Q4

REPORT INFORMATION
  Report Type: Spontaneous
  Country: US (occurrence: None)
  Receive Date: 20241128
  Receipt Date: 20241128
  Transmission Date: 20250115
  Serious: Yes (Other)
  Sender: Public
  Company Number: None

PATIENT
  Age: 54 Year
  Sex: Female
  Weight: 57.6 kg

DRUGS (6)
  1. WIXELA INHUB [Suspect]
     Active Substance: FLUTICASONE PROPIONATE\SALMETEROL XINAFOATE
     Indication: Asthma
     Dates: start: 20241117
  2. VITAMINS [Concomitant]
     Active Substance: VITAMINS
  3. B12 [Concomitant]
  4. HERBALS [Concomitant]
     Active Substance: HERBALS
  5. GINKGO [Concomitant]
     Active Substance: GINKGO
  6. PROBIOTICS NOS [Concomitant]
     Active Substance: PROBIOTICS NOS

REACTIONS (1)
  - Vertigo [None]

NARRATIVE: CASE EVENT DATE: 20241128
